FAERS Safety Report 8802882 (Version 6)
Quarter: 2013Q3

REPORT INFORMATION
  Report Type: Report from Study
  Country: JP (occurrence: JP)
  Receive Date: 20120924
  Receipt Date: 20130906
  Transmission Date: 20140515
  Serious: Yes (Hospitalization)
  Sender: FDA-Public Use
  Company Number: JP-VERTEX PHARMACEUTICAL INC.-2012-021624

PATIENT
  Age: 61 Year
  Sex: Female

DRUGS (7)
  1. VX-950 (TELAPREVIR) [Suspect]
     Indication: CHRONIC HEPATITIS C
     Dosage: 1500 MG, QD
     Route: 048
     Dates: start: 20120302, end: 20120524
  2. RIBAVIRIN [Suspect]
     Indication: CHRONIC HEPATITIS C
     Dosage: 400 MG, QD
     Route: 048
     Dates: start: 20120302, end: 20120405
  3. RIBAVIRIN [Suspect]
     Dosage: 200 MG, QD
     Route: 048
     Dates: start: 20120406, end: 20120817
  4. PEGINTERFERON ALFA-2B [Suspect]
     Indication: CHRONIC HEPATITIS C
     Dosage: 1.5 ?G/KG, QW
     Route: 058
     Dates: start: 20120302, end: 20120811
  5. TAKEPRON [Concomitant]
     Dosage: 30 MG, QD
     Route: 048
     Dates: end: 20120322
  6. NEXIUM [Concomitant]
     Dosage: 20 MG, QD
     Route: 048
     Dates: start: 20120323
  7. PROMAC [Concomitant]
     Dosage: 150 MG, QD
     Route: 048

REACTIONS (1)
  - Lymph node tuberculosis [Not Recovered/Not Resolved]
